FAERS Safety Report 9548212 (Version 1)
Quarter: 2013Q2

REPORT INFORMATION
  Report Type: Spontaneous
  Country: US (occurrence: None)
  Receive Date: 20130524
  Receipt Date: 20130524
  Transmission Date: 20140414
  Serious: No
  Sender: FDA-Public Use
  Company Number: PHEH2013US004903

PATIENT
  Sex: Female
  Weight: 61.2 kg

DRUGS (7)
  1. GILENYA (FINGOLIMOD) CAPSULE, 0.5MG [Suspect]
  2. GABAPENTIN (GABAPENTIN) [Concomitant]
  3. SYNTHROID (LEVOTHYRINE SODIUM) [Concomitant]
  4. LISINOPRIL (LISINOPRIL) [Concomitant]
  5. CALCIUM + D DUETTO(CALCIUM , COLECALCIFEROL) [Concomitant]
  6. VITAMIN B12 (CYANOCOBALAMIN) [Concomitant]
  7. FISH OIL (FISH OIL) [Concomitant]

REACTIONS (3)
  - Sensory disturbance [None]
  - Diplopia [None]
  - Vision blurred [None]
